FAERS Safety Report 24623502 (Version 1)
Quarter: 2024Q4

REPORT INFORMATION
  Report Type: Spontaneous
  Country: DK (occurrence: DK)
  Receive Date: 20241115
  Receipt Date: 20241115
  Transmission Date: 20250115
  Serious: Yes (Other)
  Sender: ACCORD
  Company Number: DK-EMA-20121107-mgevhumanwt-094841932

PATIENT
  Age: 53 Year
  Sex: Male

DRUGS (4)
  1. MYCOPHENOLATE MOFETIL [Suspect]
     Active Substance: MYCOPHENOLATE MOFETIL
     Indication: Dermatitis atopic
  2. AZATHIOPRINE [Suspect]
     Active Substance: AZATHIOPRINE
     Indication: Dermatitis atopic
     Dosage: 3 MG/KG
  3. CYCLOSPORINE [Suspect]
     Active Substance: CYCLOSPORINE
     Indication: Dermatitis atopic
     Dosage: 3 MG/KG
  4. METHOTREXATE [Suspect]
     Active Substance: METHOTREXATE
     Indication: Dermatitis atopic

REACTIONS (6)
  - Off label use [Unknown]
  - Dermatitis [Recovered/Resolved]
  - Dermatitis exfoliative generalised [Recovering/Resolving]
  - Lymphocytosis [Recovering/Resolving]
  - Cutaneous T-cell lymphoma [Recovering/Resolving]
  - Lymphadenopathy [Recovering/Resolving]
